FAERS Safety Report 13930161 (Version 6)
Quarter: 2021Q3

REPORT INFORMATION
  Report Type: Spontaneous
  Country: US (occurrence: US)
  Receive Date: 20170901
  Receipt Date: 20210824
  Transmission Date: 20211014
  Serious: Yes (Hospitalization)
  Sender: FDA-Public Use
  Company Number: US-VIFOR (INTERNATIONAL) INC.-VIT-2017-08871

PATIENT
  Age: 71 Year
  Sex: Female
  Weight: 86.26 kg

DRUGS (18)
  1. MOD [Concomitant]
  2. CITALOPRAM HYDROBROMIDE. [Concomitant]
     Active Substance: CITALOPRAM HYDROBROMIDE
  3. BYDUREON [Concomitant]
     Active Substance: EXENATIDE
  4. VYTORIN [Concomitant]
     Active Substance: EZETIMIBE\SIMVASTATIN
  5. OMEPRAZOLE. [Concomitant]
     Active Substance: OMEPRAZOLE
  6. VELTASSA [Suspect]
     Active Substance: PATIROMER
     Route: 048
     Dates: start: 201603
  7. VELTASSA [Suspect]
     Active Substance: PATIROMER
     Route: 048
  8. VITAMIN D3 [Concomitant]
     Active Substance: CHOLECALCIFEROL
  9. LIPITOR [Concomitant]
     Active Substance: ATORVASTATIN CALCIUM
  10. VELTASSA [Suspect]
     Active Substance: PATIROMER
     Indication: HYPERKALAEMIA
     Route: 048
     Dates: start: 20160406, end: 2019
  11. SULFAMETHOXAZOLE?TRIMETHOPRIM [Concomitant]
     Active Substance: SULFAMETHOXAZOLE\TRIMETHOPRIM
  12. METFORMIN HYDROCHLORIDE. [Concomitant]
     Active Substance: METFORMIN HYDROCHLORIDE
  13. TURMERIC [Concomitant]
     Active Substance: HERBALS\TURMERIC
  14. GABAPENTIN. [Concomitant]
     Active Substance: GABAPENTIN
  15. FLAXSEED [Concomitant]
     Active Substance: FLAX SEED
  16. IRON [Concomitant]
     Active Substance: IRON
  17. CLARINEX [Concomitant]
     Active Substance: DESLORATADINE
  18. ACTOS [Concomitant]
     Active Substance: PIOGLITAZONE HYDROCHLORIDE

REACTIONS (8)
  - Hospitalisation [Unknown]
  - Off label use [Unknown]
  - Arthropathy [Recovered/Resolved]
  - Fall [Not Recovered/Not Resolved]
  - Head injury [Recovered/Resolved]
  - Ear injury [Recovered/Resolved]
  - Blood potassium decreased [Unknown]
  - Pelvic fracture [Not Recovered/Not Resolved]

NARRATIVE: CASE EVENT DATE: 20170818
